FAERS Safety Report 7493377-4 (Version None)
Quarter: 2011Q2

REPORT INFORMATION
  Report Type: 
  Country: None (occurrence: None)
  Receive Date: 20110520
  Receipt Date: 20110509
  Transmission Date: 20111010
  Serious: Yes (Other)
  Sender: FDA-Public Use
  Company Number: JP-ELI_LILLY_AND_COMPANY-JP201103003774

PATIENT
  Age: 75 Year
  Sex: Female

DRUGS (1)
  1. FORTEO [Suspect]
     Route: 058
     Dates: start: 20110303

REACTIONS (6)
  - CHEST DISCOMFORT [None]
  - FALL [None]
  - HEADACHE [None]
  - ABDOMINAL DISCOMFORT [None]
  - UPPER LIMB FRACTURE [None]
  - MALAISE [None]
